FAERS Safety Report 17146688 (Version 1)
Quarter: 2019Q4

REPORT INFORMATION
  Report Type: Spontaneous
  Country: DK (occurrence: DK)
  Receive Date: 20191212
  Receipt Date: 20191212
  Transmission Date: 20200122
  Serious: Yes (Other)
  Sender: FDA-Public Use
  Company Number: DK-ACCORD-164219

PATIENT
  Sex: Female

DRUGS (1)
  1. QUETIAPINE. [Suspect]
     Active Substance: QUETIAPINE
     Indication: INSOMNIA
     Dosage: 25 MILLIGRAM DAILY
     Route: 065

REACTIONS (8)
  - Pruritus [Unknown]
  - Feeling cold [Unknown]
  - Impulse-control disorder [Unknown]
  - Decreased appetite [Unknown]
  - Eye pain [Unknown]
  - Suicidal ideation [Unknown]
  - Product use in unapproved indication [Unknown]
  - Intentional product misuse [Unknown]
